FAERS Safety Report 7120010-3 (Version None)
Quarter: 2010Q4

REPORT INFORMATION
  Report Type: 
  Country: None (occurrence: None)
  Receive Date: 20101123
  Receipt Date: 20101116
  Transmission Date: 20110411
  Serious: Yes (Other)
  Sender: FDA-Public Use
  Company Number: CN-PFIZER INC-2010149917

PATIENT

DRUGS (2)
  1. PREGABALIN [Suspect]
     Indication: DIABETIC NEUROPATHY
     Dosage: 75 MG, 2X/DAY
     Dates: start: 20100101, end: 20100101
  2. PREGABALIN [Suspect]
     Dosage: 37.5 MG
     Dates: start: 20100101

REACTIONS (2)
  - ABASIA [None]
  - MUSCULAR WEAKNESS [None]
